FAERS Safety Report 17425072 (Version 1)
Quarter: 2020Q1

REPORT INFORMATION
  Report Type: Spontaneous
  Country: FR (occurrence: FR)
  Receive Date: 20200218
  Receipt Date: 20200218
  Transmission Date: 20200409
  Serious: Yes (Hospitalization)
  Sender: FDA-Public Use
  Company Number: FR-TEVA-2020-FR-1186734

PATIENT
  Age: 69 Year
  Sex: Male
  Weight: 102 kg

DRUGS (9)
  1. NEBIVOLOL. [Concomitant]
     Active Substance: NEBIVOLOL
  2. KARDEGIC [Concomitant]
     Active Substance: ASPIRIN DL-LYSINE
  3. METFORMINE [Concomitant]
     Active Substance: METFORMIN HYDROCHLORIDE
  4. TAHOR [Concomitant]
     Active Substance: ATORVASTATIN CALCIUM
  5. FUROSEMIDE. [Concomitant]
     Active Substance: FUROSEMIDE
  6. VANCOMYCINE [Suspect]
     Active Substance: VANCOMYCIN
     Indication: OSTEITIS
     Route: 042
     Dates: start: 20191224
  7. TRULICITY [Concomitant]
     Active Substance: DULAGLUTIDE
  8. DALACINE [Concomitant]
     Active Substance: CLINDAMYCIN
  9. PANTOPRAZOLE [Concomitant]
     Active Substance: PANTOPRAZOLE

REACTIONS (1)
  - Acute kidney injury [Recovering/Resolving]

NARRATIVE: CASE EVENT DATE: 20200109
